FAERS Safety Report 9643275 (Version 1)
Quarter: 2013Q4

REPORT INFORMATION
  Report Type: Spontaneous
  Country: US (occurrence: US)
  Receive Date: 20131024
  Receipt Date: 20131024
  Transmission Date: 20140711
  Serious: No
  Sender: FDA-Public Use
  Company Number: US-BAYER-2013-119024

PATIENT
  Age: 36 Year
  Sex: Female
  Weight: 111.57 kg

DRUGS (5)
  1. BETASERON [Suspect]
     Indication: MULTIPLE SCLEROSIS
     Dosage: 1 MG, UNK
     Route: 058
     Dates: start: 201305, end: 20130930
  2. BENADRYL [Concomitant]
  3. NAPROXEN [Concomitant]
  4. VITAMIN D [Concomitant]
  5. ZOMIG [Concomitant]

REACTIONS (3)
  - Injection site erythema [None]
  - Injection site swelling [None]
  - Injection site bruising [None]
